FAERS Safety Report 4887469-3 (Version None)
Quarter: 2006Q1

REPORT INFORMATION
  Report Type: 
  Country: None (occurrence: None)
  Receive Date: 20060118
  Receipt Date: 20060106
  Transmission Date: 20060701
  Serious: Yes (Other)
  Sender: FDA-Public Use
  Company Number: 2005164606

PATIENT
  Age: 26 Year
  Sex: Female
  Weight: 35 kg

DRUGS (6)
  1. ATARAX [Suspect]
     Indication: ABDOMINAL PAIN UPPER
     Dosage: 25 MG (1 D), INTRAMUSCULAR)
     Route: 030
     Dates: start: 20031215, end: 20031219
  2. MERCAZOLE (THIAMAZOLE) [Suspect]
     Indication: HYPERTHYROIDISM
     Dosage: 15 MG (1 D), ORAL
     Route: 048
     Dates: start: 20031203, end: 20031219
  3. INDERAL [Concomitant]
  4. ROXATIDINE ACETATE HCL [Suspect]
     Indication: ABDOMINAL PAIN UPPER
     Dosage: 150 MG (75 MG, 2 IN 1 D), ORAL
     Route: 048
     Dates: start: 20031215, end: 20031216
  5. STROCAIN (OXETACAINE) [Suspect]
     Indication: GASTRITIS
     Dosage: 3 TABLETS (1 D), ORAL
     Route: 048
     Dates: start: 20031215, end: 20031216
  6. SOSEGON (PENTAZOCINE) [Suspect]
     Indication: PAIN
     Dosage: 15 MG, INTRAMUSCULAR
     Route: 030
     Dates: start: 20031215, end: 20031219

REACTIONS (4)
  - ALANINE AMINOTRANSFERASE INCREASED [None]
  - ASPARTATE AMINOTRANSFERASE INCREASED [None]
  - GAMMA-GLUTAMYLTRANSFERASE INCREASED [None]
  - HEPATIC FUNCTION ABNORMAL [None]
